FAERS Safety Report 17102881 (Version 3)
Quarter: 2025Q3

REPORT INFORMATION
  Report Type: Report from Study
  Country: JP (occurrence: JP)
  Receive Date: 20191203
  Receipt Date: 20250802
  Transmission Date: 20251021
  Serious: Yes (Hospitalization, Other)
  Sender: ALEXION PHARMACEUTICALS
  Company Number: JP-ALEXION-A201912805

PATIENT
  Age: 48 Year
  Sex: Female
  Weight: 60 kg

DRUGS (3)
  1. SOLIRIS [Suspect]
     Active Substance: ECULIZUMAB
     Indication: Paroxysmal nocturnal haemoglobinuria
     Dosage: 900 MILLIGRAM, Q2W
  2. PENICILLIN G [Concomitant]
     Active Substance: PENICILLIN G
     Dosage: 24000000 INTERNATIONAL UNIT, QD
     Route: 065
     Dates: start: 20190805, end: 20190812
  3. FILGRASTIM [Concomitant]
     Active Substance: FILGRASTIM
     Dosage: 0.75 MICROGRAM, QD
     Route: 065
     Dates: start: 20190809, end: 20190812

REACTIONS (2)
  - Laryngopharyngitis [Recovering/Resolving]
  - Product preparation issue [Unknown]

NARRATIVE: CASE EVENT DATE: 20190804
